FAERS Safety Report 9526832 (Version 10)
Quarter: 2014Q3

REPORT INFORMATION
  Report Type: Report from Study
  Country: CA (occurrence: CA)
  Receive Date: 20130916
  Receipt Date: 20140908
  Transmission Date: 20150326
  Serious: Yes (Hospitalization, Other)
  Sender: FDA-Public Use
  Company Number: PHHY2013CA042640

PATIENT
  Age: 72 Year
  Sex: Female

DRUGS (23)
  1. TYLENOL [Concomitant]
     Active Substance: ACETAMINOPHEN
     Indication: BACK PAIN
     Dosage: UNK UKN, PRN
  2. TYLENOL [Concomitant]
     Active Substance: ACETAMINOPHEN
     Indication: PAIN
  3. EXJADE [Suspect]
     Active Substance: DEFERASIROX
     Indication: MYELODYSPLASTIC SYNDROME
     Dosage: 250 MG, QD
     Route: 048
     Dates: start: 20130221
  4. EXJADE [Suspect]
     Active Substance: DEFERASIROX
     Dosage: 2 DF, DAILY
     Route: 048
  5. EXJADE [Suspect]
     Active Substance: DEFERASIROX
     Dosage: 1000 MG, QD
     Route: 048
     Dates: end: 201312
  6. EXJADE [Suspect]
     Active Substance: DEFERASIROX
     Dosage: 1000 MG, QD
     Dates: start: 201404, end: 20140904
  7. FORMUCARE ULTRASPEED SPORTS ADVANTAGE [Concomitant]
     Active Substance: TROLAMINE SALICYLATE
     Dosage: UNK UKN, PRN
  8. EXJADE [Suspect]
     Active Substance: DEFERASIROX
     Dosage: 750 MG, (THREE TABLETS) QD
     Route: 048
  9. EXJADE [Suspect]
     Active Substance: DEFERASIROX
     Dosage: UNK UKN, UNK
     Route: 048
  10. EXJADE [Suspect]
     Active Substance: DEFERASIROX
     Dosage: 2000 MG, QD
     Route: 048
  11. NEUPOGEN [Concomitant]
     Active Substance: FILGRASTIM
     Dosage: UNK UKN, UNK
  12. VALACYCLOVIR [Concomitant]
     Active Substance: VALACYCLOVIR HYDROCHLORIDE
     Dosage: UNK UKN, UNK
  13. EXJADE [Suspect]
     Active Substance: DEFERASIROX
     Dosage: 1000 MG, QD
     Route: 048
     Dates: start: 20130523
  14. EXJADE [Suspect]
     Active Substance: DEFERASIROX
     Dosage: 500 MG, QD
     Route: 048
  15. EXJADE [Suspect]
     Active Substance: DEFERASIROX
     Dosage: 8 DF, DAILY
     Route: 048
  16. EXJADE [Suspect]
     Active Substance: DEFERASIROX
     Dosage: 2000 MG, QD
     Route: 048
     Dates: start: 20130516
  17. EXJADE [Suspect]
     Active Substance: DEFERASIROX
     Dosage: 1000 MG, QD
     Route: 048
  18. VIDAZA [Suspect]
     Active Substance: AZACITIDINE
     Dosage: UNK UKN, UNK
  19. EXJADE [Suspect]
     Active Substance: DEFERASIROX
     Dosage: 500 MG, QD
     Route: 048
     Dates: start: 20140428
  20. EXJADE [Suspect]
     Active Substance: DEFERASIROX
     Dosage: 1 DF, DAILY
     Route: 048
  21. EXJADE [Suspect]
     Active Substance: DEFERASIROX
     Dosage: 1000 MG, QD
     Route: 048
  22. EXJADE [Suspect]
     Active Substance: DEFERASIROX
     Dosage: 2000 MG, QD
     Route: 048
  23. ANTIBIOTICS [Concomitant]
     Active Substance: UNSPECIFIED INGREDIENT
     Indication: INFECTION
     Dosage: UNK UKN, UNK

REACTIONS (20)
  - Injection site erythema [Recovered/Resolved]
  - Skin reaction [Unknown]
  - Accident [Unknown]
  - Abnormal faeces [Unknown]
  - Nausea [Unknown]
  - Fatigue [Recovered/Resolved]
  - Weight decreased [Unknown]
  - Abdominal pain upper [Recovered/Resolved]
  - Platelet count decreased [Unknown]
  - Injection site mass [Recovered/Resolved]
  - Fall [Unknown]
  - White blood cell count decreased [Unknown]
  - Back pain [Unknown]
  - Diarrhoea [Unknown]
  - Frequent bowel movements [Recovered/Resolved]
  - Abdominal pain [Recovered/Resolved]
  - Decreased appetite [Recovered/Resolved]
  - Faeces discoloured [Unknown]
  - Dysphagia [Unknown]
  - Femur fracture [Unknown]

NARRATIVE: CASE EVENT DATE: 20130425
